FAERS Safety Report 5129123-9 (Version None)
Quarter: 2006Q4

REPORT INFORMATION
  Report Type: 
  Country: None (occurrence: None)
  Receive Date: 20061011
  Receipt Date: 20060926
  Transmission Date: 20070319
  Serious: Yes (Hospitalization)
  Sender: FDA-Public Use
  Company Number: CA200609003090

PATIENT
  Age: 51 Year
  Sex: Male

DRUGS (9)
  1. ZYPREXA [Suspect]
     Indication: AFFECTIVE DISORDER
     Dosage: 2.5 MG, UNK; ORAL, 5MG, DAILY (1/D);
     Route: 048
     Dates: start: 20060608, end: 20060621
  2. ZYPREXA [Suspect]
     Indication: AFFECTIVE DISORDER
     Dosage: 2.5 MG, UNK; ORAL, 5MG, DAILY (1/D);
     Route: 048
     Dates: start: 20060622
  3. SINEMET [Concomitant]
  4. PANTOLOC ^SOLVAY^ (PANTOPRAZOLE SODIUM) [Concomitant]
  5. CELEXA [Concomitant]
  6. SYNTHROID [Concomitant]
  7. GABAPENTIN [Concomitant]
  8. HYDROMORPH CONTIN (HYDROMORPHONE HYDROCHLORIDE) [Concomitant]
  9. HYDROMORPHONE HYDROCHLORIDE [Concomitant]

REACTIONS (1)
  - MYOSITIS [None]
